FAERS Safety Report 22031254 (Version 1)
Quarter: 2023Q1

REPORT INFORMATION
  Report Type: Other
  Country: US (occurrence: US)
  Receive Date: 20230223
  Receipt Date: 20230223
  Transmission Date: 20230417
  Serious: Yes (Hospitalization)
  Sender: FDA-Public Use
  Company Number: US-ALVOGEN-2023089250

PATIENT
  Age: 28 Year
  Sex: Male

DRUGS (1)
  1. FENTANYL [Suspect]
     Active Substance: FENTANYL
     Indication: Product used for unknown indication

REACTIONS (10)
  - Toxicity to various agents [Unknown]
  - Deafness bilateral [Recovered/Resolved]
  - Mouth haemorrhage [Unknown]
  - Dysstasia [Unknown]
  - Encephalitis autoimmune [Unknown]
  - Rhabdomyolysis [Unknown]
  - Acute kidney injury [Not Recovered/Not Resolved]
  - Carbon monoxide poisoning [Unknown]
  - Ischaemia [Unknown]
  - Confusional state [Unknown]
